FAERS Safety Report 17115151 (Version 1)
Quarter: 2019Q4

REPORT INFORMATION
  Report Type: Spontaneous
  Country: US (occurrence: US)
  Receive Date: 20191204
  Receipt Date: 20191204
  Transmission Date: 20200122
  Serious: Yes (Disabling, Other)
  Sender: FDA-Public Use
  Company Number: None

PATIENT
  Age: 71 Year
  Sex: Male
  Weight: 76.5 kg

DRUGS (5)
  1. CIPROFLOXACIN HCL 500 MG [Suspect]
     Active Substance: CIPROFLOXACIN HYDROCHLORIDE
     Indication: URINARY TRACT INFECTION
     Dosage: ?          QUANTITY:1 TABLET(S);?
     Route: 048
     Dates: start: 20190227, end: 20190527
  2. TRAMADOL HCL 50 MG EVERY 6 HOURS [Concomitant]
  3. ROPINIROL HCL 4 MG [Concomitant]
  4. BACLOFEN 20 MG [Concomitant]
     Active Substance: BACLOFEN
  5. NITROFURAN 100 MG EVERY 12 HOURS [Concomitant]

REACTIONS (11)
  - Product substitution issue [None]
  - Insurance issue [None]
  - Paraesthesia [None]
  - Confusional state [None]
  - Pain in extremity [None]
  - Muscular weakness [None]
  - Dizziness [None]
  - Neuropathy peripheral [None]
  - Tendonitis [None]
  - Disability [None]
  - Adverse drug reaction [None]

NARRATIVE: CASE EVENT DATE: 20190401
